FAERS Safety Report 19616109 (Version 1)
Quarter: 2021Q3

REPORT INFORMATION
  Report Type: Spontaneous
  Country: US (occurrence: US)
  Receive Date: 20210727
  Receipt Date: 20210727
  Transmission Date: 20211014
  Serious: No
  Sender: FDA-Public Use
  Company Number: US-ABBVIE-21K-163-3846470-00

PATIENT
  Sex: Female

DRUGS (1)
  1. SYNTHROID [Suspect]
     Active Substance: LEVOTHYROXINE SODIUM
     Indication: PRODUCT USED FOR UNKNOWN INDICATION
     Route: 048

REACTIONS (6)
  - Adrenal disorder [Unknown]
  - Weight loss poor [Unknown]
  - Disturbance in attention [Unknown]
  - Food allergy [Unknown]
  - Autoimmune thyroiditis [Unknown]
  - Thyroid disorder [Unknown]
